FAERS Safety Report 17925613 (Version 1)
Quarter: 2020Q2

REPORT INFORMATION
  Report Type: Spontaneous
  Country: US (occurrence: US)
  Receive Date: 20200622
  Receipt Date: 20200622
  Transmission Date: 20200714
  Serious: Yes (Other)
  Sender: FDA-Public Use
  Company Number: US-ASTRAZENECA-2020SE79634

PATIENT
  Sex: Female
  Weight: 49 kg

DRUGS (10)
  1. PULMICORT FLEXHALER [Suspect]
     Active Substance: BUDESONIDE
     Indication: ASTHMA
     Dosage: 90 MCG ONCE A DAY OR SKIPPING ALTOGETHER
     Route: 055
     Dates: start: 202004
  2. SUMATRIPTAN. [Concomitant]
     Active Substance: SUMATRIPTAN
     Indication: MIGRAINE
     Dosage: 50.0MG AS REQUIRED
     Route: 048
  3. CELEXA [Concomitant]
     Active Substance: CITALOPRAM HYDROBROMIDE
     Indication: ANXIETY
     Route: 048
     Dates: start: 2008
  4. PHENERGAN [Concomitant]
     Active Substance: PROMETHAZINE HYDROCHLORIDE
     Indication: MIGRAINE
     Dosage: UNKNOWN DOSE AND UNIT AS REQUIRED (USED ABOUT TWICE A YEAR)
     Route: 048
  5. OMEPRAZOLE. [Suspect]
     Active Substance: OMEPRAZOLE
     Indication: GASTRIC DISORDER
     Dosage: UNKNOWN DOSE AND UNIT AS REQUIRED
     Route: 048
  6. ARIMIDEX [Suspect]
     Active Substance: ANASTROZOLE
     Indication: BREAST CANCER FEMALE
     Route: 048
     Dates: start: 201510
  7. TIZANIDINE. [Concomitant]
     Active Substance: TIZANIDINE
     Indication: DIURETIC THERAPY
     Route: 048
  8. HOSCYAMINE SULPHATE [Concomitant]
     Indication: ABDOMINAL DISCOMFORT
     Dosage: UNKNOWN DOSE AND UNIT AS REQUIRED
     Route: 048
  9. PULMICORT FLEXHALER [Suspect]
     Active Substance: BUDESONIDE
     Indication: ASTHMA
     Dosage: 90 MCG 2 PUFFS TWO TIMES A DAY
     Route: 055
     Dates: start: 20200402
  10. ROSUVASTATIN. [Suspect]
     Active Substance: ROSUVASTATIN
     Indication: BLOOD CHOLESTEROL INCREASED
     Route: 048

REACTIONS (2)
  - Vomiting [Unknown]
  - Migraine [Unknown]
